FAERS Safety Report 17744118 (Version 1)
Quarter: 2020Q2

REPORT INFORMATION
  Report Type: Report from Study
  Country: AR (occurrence: AR)
  Receive Date: 20200504
  Receipt Date: 20200504
  Transmission Date: 20200714
  Serious: Yes (Other)
  Sender: FDA-Public Use
  Company Number: PHHY2018AR187157

PATIENT
  Sex: Male

DRUGS (3)
  1. OMNITROPE [Suspect]
     Active Substance: SOMATROPIN
     Dosage: 10 MG, UNKNOWN
     Route: 065
     Dates: end: 201910
  2. OMNITROPE [Suspect]
     Active Substance: SOMATROPIN
     Indication: GROWTH HORMONE DEFICIENCY
     Dosage: 1.4 MG, 6 DAYS (1 DAY REST)
     Route: 065
     Dates: start: 20101126
  3. OMNITROPE [Suspect]
     Active Substance: SOMATROPIN
     Dosage: 1.4 MG, 6 DAYS (1 DAY REST)
     Route: 065

REACTIONS (5)
  - Spine malformation [Not Recovered/Not Resolved]
  - Scoliosis [Unknown]
  - Kyphoscoliosis [Not Recovered/Not Resolved]
  - Lung disorder [Not Recovered/Not Resolved]
  - Posture abnormal [Not Recovered/Not Resolved]
